FAERS Safety Report 8500592-7 (Version None)
Quarter: 2012Q3

REPORT INFORMATION
  Report Type: 
  Country: None (occurrence: None)
  Receive Date: 20120703
  Receipt Date: 20120703
  Transmission Date: 20120928
  Serious: Yes (Other)
  Sender: FDA-Public Use
  Company Number: None

PATIENT
  Sex: Male
  Weight: 86.4 kg

DRUGS (1)
  1. RIBAPAK 1200 MG/DAY PACK KADMON PHARMACEUTICALS [Suspect]
     Indication: HEPATITIS C
     Dosage: 600 MG TWICE A DAY BY MOUTH
     Route: 048
     Dates: start: 20111201, end: 20120201

REACTIONS (4)
  - MALAISE [None]
  - FATIGUE [None]
  - ANAEMIA [None]
  - GAIT DISTURBANCE [None]
